APPROVED DRUG PRODUCT: PAROXETINE HYDROCHLORIDE
Active Ingredient: PAROXETINE HYDROCHLORIDE
Strength: EQ 12.5MG BASE
Dosage Form/Route: TABLET, EXTENDED RELEASE;ORAL
Application: A213612 | Product #001
Applicant: EPIC PHARMA LLC
Approved: Aug 11, 2021 | RLD: No | RS: No | Type: DISCN